FAERS Safety Report 6139662-X (Version None)
Quarter: 2009Q1

REPORT INFORMATION
  Report Type: 
  Country: None (occurrence: None)
  Receive Date: 20090324
  Receipt Date: 20090312
  Transmission Date: 20090719
  Serious: Yes (Hospitalization)
  Sender: FDA-Public Use
  Company Number: 000502

PATIENT
  Age: 42 Year
  Sex: Female
  Weight: 101 kg

DRUGS (14)
  1. LACOSAMIDE [Suspect]
     Indication: EPILEPSY
     Dosage: TABLET 600 MG BID ORAL
     Route: 048
     Dates: start: 20090204
  2. MEBEVERINE HYDROCHLORIDE (MEBEVERINE HYDROCHLORIDE) [Concomitant]
  3. LAMICTAL [Concomitant]
  4. SNO TEARS (POLYVINYL ALCOHOL) [Concomitant]
  5. VALPROATE SODIUM [Concomitant]
  6. LANSOPRAZOLE [Concomitant]
  7. VISCOTEARS (CARBOMER) [Concomitant]
  8. CLOBAZAM (CLOBAZAM) [Concomitant]
  9. MORPHINE SULPHATE BP (MORPHINE SULFATE) [Concomitant]
  10. ORAMORPH SR [Concomitant]
  11. NAPROXEN [Concomitant]
  12. ACETAMINOPHEN [Concomitant]
  13. IBUPROFEN [Concomitant]
  14. LACTULOSE [Concomitant]

REACTIONS (1)
  - GRAND MAL CONVULSION [None]
